FAERS Safety Report 9016049 (Version 1)
Quarter: 2013Q1

REPORT INFORMATION
  Report Type: Spontaneous
  Country: US (occurrence: US)
  Receive Date: 20130116
  Receipt Date: 20130116
  Transmission Date: 20140127
  Serious: Yes (Death)
  Sender: FDA-Public Use
  Company Number: CHPA2013US001064

PATIENT
  Age: 86 Year
  Sex: Female

DRUGS (3)
  1. GAS-X [Suspect]
     Indication: GASTROOESOPHAGEAL REFLUX DISEASE
     Dosage: UNK, AS NEEDED
     Route: 048
  2. GAS-X [Suspect]
     Indication: GASTROOESOPHAGEAL REFLUX DISEASE
     Dosage: AS DIRECTED, PRN
     Route: 048
  3. THYROID [Concomitant]

REACTIONS (2)
  - Death [Fatal]
  - Off label use [Unknown]
